FAERS Safety Report 5065469-0 (Version None)
Quarter: 2006Q3

REPORT INFORMATION
  Report Type: 
  Country: None (occurrence: None)
  Receive Date: 20060731
  Receipt Date: 20060724
  Transmission Date: 20061208
  Serious: Yes (Disabling, Congenital Anomaly, Other)
  Sender: FDA-Public Use
  Company Number: FR-AVENTIS-200612594FR

PATIENT
  Age: 76 Year
  Sex: Female

DRUGS (5)
  1. KETEK [Suspect]
     Route: 048
     Dates: start: 20060510, end: 20060516
  2. METHOTREXATE NOS [Concomitant]
     Dates: end: 20060501
  3. PURINETHOL [Concomitant]
     Dates: end: 20060501
  4. HELICIDINE [Concomitant]
     Route: 048
  5. OPHTHALMOLOGICALS [Concomitant]
     Route: 031

REACTIONS (3)
  - AGEUSIA [None]
  - ANOSMIA [None]
  - RASH [None]
